FAERS Safety Report 4768047-3 (Version None)
Quarter: 2005Q3

REPORT INFORMATION
  Report Type: 
  Country: None (occurrence: None)
  Receive Date: 20050913
  Receipt Date: 20050830
  Transmission Date: 20060218
  Serious: Yes (Hospitalization)
  Sender: FDA-Public Use
  Company Number: 233565K05USA

PATIENT
  Age: 49 Year
  Sex: Female
  Weight: 81.6475 kg

DRUGS (6)
  1. REBIF [Suspect]
     Indication: MULTIPLE SCLEROSIS
     Dosage: 44 MCG, 3 IN 1 WEEKS
     Dates: start: 20040501, end: 20050203
  2. NOVANTRONE [Suspect]
     Indication: MULTIPLE SCLEROSIS
     Dosage: 22 MCG, 1 IN 3 MONTHS
     Dates: start: 20020101, end: 20050203
  3. OXYCONTIN [Concomitant]
  4. NEURONTIN [Concomitant]
  5. OXYCODONE HCL [Concomitant]
  6. TEGRETOL [Suspect]
     Dosage: 300 MG, 4 IN 1 DAYS, ORAL
     Route: 048
     Dates: end: 20050801

REACTIONS (4)
  - BLOOD IMMUNOGLOBULIN G DECREASED [None]
  - GASTROENTERITIS VIRAL [None]
  - UROSEPSIS [None]
  - WHITE BLOOD CELL COUNT DECREASED [None]
